FAERS Safety Report 25920716 (Version 2)
Quarter: 2025Q4

REPORT INFORMATION
  Report Type: Spontaneous
  Country: IN (occurrence: IN)
  Receive Date: 20251014
  Receipt Date: 20251015
  Transmission Date: 20260118
  Serious: Yes (Death, Other)
  Sender: PFIZER
  Company Number: IN-PFIZER INC-PV202400070873

PATIENT
  Age: 37 Year
  Sex: Male

DRUGS (4)
  1. CRIZOTINIB [Suspect]
     Active Substance: CRIZOTINIB
     Indication: Lung neoplasm malignant
     Dosage: 250 MG, 2X/DAY (BID)
     Route: 048
     Dates: start: 202404
  2. ULTRACET [Concomitant]
     Active Substance: ACETAMINOPHEN\TRAMADOL HYDROCHLORIDE
     Dosage: UNK, 2X/DAY FOR 3 MONTHS
  3. LEVERON [LEVETIRACETAM] [Concomitant]
     Dosage: 750 MG FOR 3 MONTHS
  4. TRAMADOL [Concomitant]
     Active Substance: TRAMADOL
     Dosage: 1 AMPOULE FOR 3 MONTHS

REACTIONS (2)
  - Death [Fatal]
  - Pain [Unknown]

NARRATIVE: CASE EVENT DATE: 20240101
